FAERS Safety Report 14342508 (Version 1)
Quarter: 2017Q4

REPORT INFORMATION
  Report Type: Spontaneous
  Country: US (occurrence: US)
  Receive Date: 20171229
  Receipt Date: 20171229
  Transmission Date: 20180321
  Serious: Yes (Hospitalization)
  Sender: FDA-Public Use
  Company Number: None

PATIENT
  Age: 63 Year
  Sex: Male

DRUGS (1)
  1. TACROLIMUS CAP 0.5MG DR REDDYS LABORATORIES [Suspect]
     Active Substance: TACROLIMUS
     Indication: LIVER TRANSPLANT
     Dates: start: 2008

REACTIONS (1)
  - Cough [None]

NARRATIVE: CASE EVENT DATE: 20171222
